APPROVED DRUG PRODUCT: DICYCLOMINE HYDROCHLORIDE
Active Ingredient: DICYCLOMINE HYDROCHLORIDE
Strength: 20MG
Dosage Form/Route: TABLET;ORAL
Application: A216736 | Product #001 | TE Code: AB
Applicant: RUBICON RESEARCH LTD
Approved: Dec 14, 2022 | RLD: No | RS: No | Type: RX